FAERS Safety Report 6356516-4 (Version None)
Quarter: 2009Q3

REPORT INFORMATION
  Report Type: 
  Country: None (occurrence: None)
  Receive Date: 20090915
  Receipt Date: 20090907
  Transmission Date: 20100115
  Serious: Yes (Other)
  Sender: FDA-Public Use
  Company Number: B0592990A

PATIENT
  Sex: Female

DRUGS (1)
  1. LAMICTAL [Suspect]
     Indication: EPILEPSY
     Route: 065
     Dates: end: 20070914

REACTIONS (7)
  - EMOTIONAL DISTRESS [None]
  - EYE SWELLING [None]
  - HEPATIC ENZYME INCREASED [None]
  - MENTAL IMPAIRMENT [None]
  - MOVEMENT DISORDER [None]
  - PYREXIA [None]
  - RASH [None]
